FAERS Safety Report 14211206 (Version 1)
Quarter: 2017Q4

REPORT INFORMATION
  Report Type: Spontaneous
  Country: US (occurrence: US)
  Receive Date: 20171121
  Receipt Date: 20171121
  Transmission Date: 20180321
  Serious: No
  Sender: FDA-Public Use
  Company Number: PHEH2017US037380

PATIENT
  Sex: Male

DRUGS (1)
  1. COSENTYX [Suspect]
     Active Substance: SECUKINUMAB
     Indication: NAIL PSORIASIS
     Dosage: UNK
     Route: 065

REACTIONS (4)
  - Skin fissures [Unknown]
  - Dry skin [Unknown]
  - Pain of skin [Unknown]
  - Erythema [Unknown]
